FAERS Safety Report 4474637-8 (Version None)
Quarter: 2004Q4

REPORT INFORMATION
  Report Type: 
  Country: None (occurrence: None)
  Receive Date: 20041012
  Receipt Date: 20040928
  Transmission Date: 20050328
  Serious: Yes (Hospitalization)
  Sender: FDA-Public Use
  Company Number: 2004236384JP

PATIENT
  Age: 50 Year
  Sex: Female

DRUGS (6)
  1. HYSRON-H200(MEDROXYPROGESTERONE ACETATE) TABLET, 100-500MG [Suspect]
     Dosage: ORAL
     Route: 048
     Dates: start: 20030115
  2. XELODA [Suspect]
     Indication: BREAST CANCER
     Dosage: ORAL
     Route: 048
     Dates: start: 20040803, end: 20040928
  3. NORVADEX [Concomitant]
  4. TAXOL [Concomitant]
  5. TAXOTERE [Concomitant]
  6. AROMASIN (EXEMESTATNE) TABLET [Concomitant]

REACTIONS (2)
  - DYSPNOEA [None]
  - PULMONARY OEDEMA [None]
